FAERS Safety Report 19754043 (Version 1)
Quarter: 2021Q3

REPORT INFORMATION
  Report Type: Spontaneous
  Country: US (occurrence: US)
  Receive Date: 20210824
  Receipt Date: 20210824
  Transmission Date: 20211014
  Serious: No
  Sender: FDA-Public Use
  Company Number: None

PATIENT

DRUGS (2)
  1. BETIMOL [Suspect]
     Active Substance: TIMOLOL
     Route: 031
  2. ISTALOL [Suspect]
     Active Substance: TIMOLOL MALEATE
     Route: 031

REACTIONS (5)
  - Intercepted medication error [None]
  - Product packaging confusion [None]
  - Product selection error [None]
  - Product name confusion [None]
  - Product dispensing error [None]
